FAERS Safety Report 17458973 (Version 1)
Quarter: 2020Q1

REPORT INFORMATION
  Report Type: Spontaneous
  Country: US (occurrence: US)
  Receive Date: 20200225
  Receipt Date: 20200225
  Transmission Date: 20200409
  Serious: No
  Sender: FDA-Public Use
  Company Number: US-IGSA-SR10009177

PATIENT
  Age: 45 Year
  Sex: Female
  Weight: 116 kg

DRUGS (42)
  1. AUGMENTIN [Concomitant]
     Active Substance: AMOXICILLIN\CLAVULANATE POTASSIUM
  2. FAMOTIDINE. [Concomitant]
     Active Substance: FAMOTIDINE
  3. IPRATROPIUM/ALBUTEROL [Concomitant]
     Active Substance: ALBUTEROL\IPRATROPIUM
  4. LIOTHYRONINE SODIUM. [Concomitant]
     Active Substance: LIOTHYRONINE SODIUM
  5. VITAMIN C [Concomitant]
     Active Substance: ASCORBIC ACID
  6. ZOFRAN [Concomitant]
     Active Substance: ONDANSETRON HYDROCHLORIDE
  7. NITROGLYCERIN. [Concomitant]
     Active Substance: NITROGLYCERIN
  8. PROBIOTICS                         /90114801/ [Concomitant]
  9. XOPENEX HFA [Concomitant]
     Active Substance: LEVALBUTEROL TARTRATE
  10. PROLASTIN-C LIQUID [Suspect]
     Active Substance: .ALPHA.1-PROTEINASE INHIBITOR HUMAN
     Indication: ALPHA-1 ANTI-TRYPSIN DEFICIENCY
     Dosage: 6960 MG, Q.WK.
     Route: 042
     Dates: start: 20190918
  11. CHELATED MAGNESIUM                 /01066801/ [Concomitant]
  12. ESCITALOPRAM OXALATE. [Concomitant]
     Active Substance: ESCITALOPRAM OXALATE
  13. HYDROCORTISONE. [Concomitant]
     Active Substance: HYDROCORTISONE
  14. QNASL [Concomitant]
     Active Substance: BECLOMETHASONE DIPROPIONATE
  15. TRAMADOL HCL [Concomitant]
     Active Substance: TRAMADOL HYDROCHLORIDE
  16. ALAVERT ALLERGY [Concomitant]
     Active Substance: LORATADINE
  17. ADVIL JUNIOR STRENGTH [Concomitant]
  18. BELSOMRA [Concomitant]
     Active Substance: SUVOREXANT
  19. CEFTIN [Concomitant]
     Active Substance: CEFUROXIME AXETIL
  20. DILTIAZEM HCL [Concomitant]
     Active Substance: DILTIAZEM HYDROCHLORIDE
  21. LEVALBUTEROL HCL [Concomitant]
     Active Substance: LEVALBUTEROL HYDROCHLORIDE
  22. MAGNESIUM GLUCONATE [Concomitant]
     Active Substance: MAGNESIUM GLUCONATE
  23. MEDROL [Concomitant]
     Active Substance: METHYLPREDNISOLONE
  24. MICROGESTIN [Concomitant]
     Active Substance: ETHINYL ESTRADIOL\NORETHINDRONE ACETATE
  25. SINGULAIR [Concomitant]
     Active Substance: MONTELUKAST SODIUM
  26. ADVAIR HFA [Concomitant]
     Active Substance: FLUTICASONE PROPIONATE\SALMETEROL XINAFOATE
  27. CLONAZEPAM. [Concomitant]
     Active Substance: CLONAZEPAM
  28. VENTOLIN HFA [Concomitant]
     Active Substance: ALBUTEROL SULFATE
  29. ZINC CHELATE [Concomitant]
  30. HYDROCODONE BITARTRATE AND ACETAMINOPHEN [Concomitant]
     Active Substance: ACETAMINOPHEN\HYDROCODONE BITARTRATE
  31. METAXALONE. [Concomitant]
     Active Substance: METAXALONE
  32. MULTIVITAMINUM [Concomitant]
     Active Substance: VITAMINS
  33. XANAX [Concomitant]
     Active Substance: ALPRAZOLAM
  34. BREO ELLIPTA [Concomitant]
     Active Substance: FLUTICASONE FUROATE\VILANTEROL TRIFENATATE
  35. EFFEXOR [Concomitant]
     Active Substance: VENLAFAXINE HYDROCHLORIDE
  36. HORIZANT [Concomitant]
     Active Substance: GABAPENTIN ENACARBIL
  37. PREDNISONE. [Concomitant]
     Active Substance: PREDNISONE
  38. SELENIUM [Concomitant]
     Active Substance: SELENIUM
     Dosage: 200 UNK, UNK
  39. CALCIUM 600+D3 [Concomitant]
     Active Substance: CALCIUM CARBONATE\VITAMIN D
  40. NYSTATIN. [Concomitant]
     Active Substance: NYSTATIN
  41. OMEGA 3 FISH OIL                   /01334101/ [Concomitant]
     Active Substance: FISH OIL
  42. TIROSINT [Concomitant]
     Active Substance: LEVOTHYROXINE SODIUM

REACTIONS (1)
  - Headache [Recovered/Resolved]

NARRATIVE: CASE EVENT DATE: 20190918
